FAERS Safety Report 23536934 (Version 1)
Quarter: 2024Q1

REPORT INFORMATION
  Report Type: Spontaneous
  Country: US (occurrence: US)
  Receive Date: 20240219
  Receipt Date: 20240219
  Transmission Date: 20240410
  Serious: No
  Sender: FDA-Public Use
  Company Number: US-AMGEN-USASP2024030787

PATIENT

DRUGS (2)
  1. AMJEVITA [Suspect]
     Active Substance: ADALIMUMAB-ATTO
     Indication: Ankylosing spondylitis
     Dosage: UNK UNK, QWK
     Route: 065
  2. AMJEVITA [Suspect]
     Active Substance: ADALIMUMAB-ATTO
     Indication: Psoriatic arthropathy

REACTIONS (5)
  - Therapeutic product effect decreased [Unknown]
  - C-reactive protein abnormal [Unknown]
  - Platelet count increased [Unknown]
  - White blood cell count increased [Unknown]
  - Off label use [Unknown]
